FAERS Safety Report 7927081-2 (Version None)
Quarter: 2011Q4

REPORT INFORMATION
  Report Type: 
  Country: None (occurrence: None)
  Receive Date: 20111116
  Receipt Date: 20111104
  Transmission Date: 20120403
  Serious: Yes (Life-Threatening)
  Sender: FDA-Public Use
  Company Number: 2011MA016273

PATIENT
  Sex: Male
  Weight: 6.21 kg

DRUGS (4)
  1. FLUOXETINE [Suspect]
     Indication: FOETAL EXPOSURE DURING PREGNANCY
     Dosage: 40 MG; QD; TRPL
     Route: 064
  2. SERTRALINE HYDROCHLORIDE [Suspect]
     Indication: FOETAL EXPOSURE DURING PREGNANCY
     Dosage: 50 MG;QD;TRPL
     Route: 064
  3. PREV MEDS [Concomitant]
  4. CON MEDS [Concomitant]

REACTIONS (2)
  - PERSISTENT FOETAL CIRCULATION [None]
  - MATERNAL DRUGS AFFECTING FOETUS [None]
